FAERS Safety Report 5853916-3 (Version None)
Quarter: 2008Q3

REPORT INFORMATION
  Report Type: 
  Country: None (occurrence: None)
  Receive Date: 20080822
  Receipt Date: 20080820
  Transmission Date: 20090109
  Serious: Yes (Hospitalization)
  Sender: FDA-Public Use
  Company Number: A0743814A

PATIENT
  Age: 33 Year
  Sex: Female
  Weight: 147.7 kg

DRUGS (10)
  1. AVANDIA [Suspect]
     Indication: GESTATIONAL DIABETES
     Dosage: 8MG TWICE PER DAY
     Route: 048
     Dates: start: 20030101
  2. ACTOS [Concomitant]
     Dates: start: 20030101
  3. GLUCOPHAGE [Concomitant]
     Dates: start: 20030101, end: 20040201
  4. METFORMIN [Concomitant]
     Dates: start: 20030101
  5. FORTAMET [Concomitant]
     Dates: start: 20030101, end: 20040201
  6. PRECOSE [Concomitant]
     Dates: start: 20030101, end: 20040201
  7. HUMALOG [Concomitant]
  8. REGULAR INSULIN [Concomitant]
     Dates: start: 20030101
  9. INSULIN INSULATARD NPH NORDISK [Concomitant]
     Dates: start: 20040201, end: 20060101
  10. GLUCOTROL [Concomitant]
     Dates: start: 20030101

REACTIONS (3)
  - CEREBROVASCULAR ACCIDENT [None]
  - MUSCLE SPASMS [None]
  - VISUAL ACUITY REDUCED [None]
